FAERS Safety Report 9728550 (Version 1)
Quarter: 2013Q4

REPORT INFORMATION
  Report Type: Report from Study
  Country: CA (occurrence: CA)
  Receive Date: 20131204
  Receipt Date: 20131204
  Transmission Date: 20140711
  Serious: Yes (Other)
  Sender: FDA-Public Use
  Company Number: CA-ABBVIE-13P-028-1174518-00

PATIENT
  Sex: Male
  Weight: 83.08 kg

DRUGS (5)
  1. HUMIRA [Suspect]
     Indication: CROHN^S DISEASE
     Route: 058
     Dates: start: 20110921, end: 20131015
  2. HUMIRA [Suspect]
     Route: 058
     Dates: start: 20131111, end: 20131111
  3. TECTA [Concomitant]
     Indication: ANTACID THERAPY
     Route: 048
     Dates: start: 2012
  4. TUMS [Concomitant]
     Indication: ANTACID THERAPY
     Route: 048
  5. ANTACIDS [Concomitant]
     Indication: ANTACID THERAPY
     Route: 048

REACTIONS (3)
  - Lymphadenopathy [Not Recovered/Not Resolved]
  - Neoplasm malignant [Not Recovered/Not Resolved]
  - Nephrolithiasis [Unknown]
